FAERS Safety Report 5702610-8 (Version None)
Quarter: 2008Q2

REPORT INFORMATION
  Report Type: 
  Country: None (occurrence: None)
  Receive Date: 20080411
  Receipt Date: 20080401
  Transmission Date: 20081010
  Serious: Yes (Hospitalization)
  Sender: FDA-Public Use
  Company Number: US-ELI_LILLY_AND_COMPANY-US200803002189

PATIENT
  Sex: Male

DRUGS (20)
  1. HUMATROPE [Suspect]
     Indication: GROWTH HORMONE DEFICIENCY
     Dosage: 50 MG, DAILY (1/D)
     Route: 058
     Dates: start: 20030101, end: 20080101
  2. SYNTHROID [Concomitant]
     Dosage: UNK, UNKNOWN
  3. MIRAPEX [Concomitant]
     Dosage: UNK, UNKNOWN
  4. HYDROCORTISONE [Concomitant]
     Dosage: 20 MG, EACH MORNING
  5. HYDROCORTISONE [Concomitant]
     Dosage: 10 MG, OTHER
  6. HYDROCORTISONE [Concomitant]
     Dosage: 10 MG, EACH EVENING
  7. DEMADEX [Concomitant]
     Indication: CARDIAC FAILURE CONGESTIVE
     Dosage: 20 MG, UNKNOWN
     Route: 048
  8. ADVAIR HFA [Concomitant]
     Indication: ASTHMA
     Dosage: UNK, UNKNOWN
  9. LANTUS [Concomitant]
     Indication: DIABETES MELLITUS
     Dosage: UNK, AS NEEDED
     Route: 058
  10. SINEMET [Concomitant]
     Indication: PARKINSON'S DISEASE
     Dosage: UNK, 2/D
  11. NEXIUM [Concomitant]
     Indication: GASTROOESOPHAGEAL REFLUX DISEASE
     Dosage: 80 MG, DAILY (1/D)
  12. SPIRONOLACTONE [Concomitant]
     Indication: CARDIAC FAILURE CONGESTIVE
     Dosage: 50 MG, DAILY (1/D)
  13. WELLBUTRIN [Concomitant]
     Indication: DEPRESSION
     Dosage: 300 MG, DAILY (1/D)
  14. ALLEGRA [Concomitant]
     Indication: ASTHMA
     Dosage: 60 MG, 2/D
  15. ZETIA [Concomitant]
     Dosage: 10 MG, DAILY (1/D)
     Route: 048
  16. TESTOSTERONE [Concomitant]
     Indication: HYPOPITUITARISM
     Dosage: UNK, MONTHLY (1/M)
     Route: 051
  17. NEURONTIN [Concomitant]
     Indication: PAIN
     Dosage: 600 MG, DAILY (1/D)
  18. CARAFATE [Concomitant]
     Indication: DYSPEPSIA
     Dosage: UNK, DAILY (1/D)
  19. LOVASTATIN [Concomitant]
     Indication: HYPERLIPIDAEMIA
     Dosage: 80 MG, EACH EVENING
  20. DOXEPIN HCL [Concomitant]
     Dosage: 10 MG, AS NEEDED

REACTIONS (8)
  - ADHESION [None]
  - ASTHENIA [None]
  - ASTHMA [None]
  - FISTULA [None]
  - INCISIONAL HERNIA [None]
  - INTESTINAL OBSTRUCTION [None]
  - PARKINSON'S DISEASE [None]
  - RENAL FAILURE [None]
